FAERS Safety Report 15580472 (Version 8)
Quarter: 2019Q1

REPORT INFORMATION
  Report Type: Spontaneous
  Country: US (occurrence: US)
  Receive Date: 20181102
  Receipt Date: 20190322
  Transmission Date: 20190417
  Serious: Yes (Hospitalization)
  Sender: FDA-Public Use
  Company Number: US-ACTELION-A-US2018-181044

PATIENT
  Age: 59 Year
  Sex: Female
  Weight: 74.83 kg

DRUGS (4)
  1. VELETRI [Suspect]
     Active Substance: EPOPROSTENOL
     Indication: PULMONARY HYPERTENSION
     Dosage: 20 NG/KG, PER MIN
     Route: 042
  2. DILTIAZEM. [Concomitant]
     Active Substance: DILTIAZEM
  3. LETAIRIS [Concomitant]
     Active Substance: AMBRISENTAN
  4. VELETRI [Suspect]
     Active Substance: EPOPROSTENOL
     Dosage: 14 NG/KG, PER MIN
     Route: 042

REACTIONS (19)
  - Catheter site extravasation [Unknown]
  - Vascular device infection [Unknown]
  - Depression [Unknown]
  - Device dislocation [Recovering/Resolving]
  - Catheter site rash [Unknown]
  - Nasopharyngitis [Unknown]
  - Catheter site discharge [Recovered/Resolved]
  - Dyspnoea [Recovering/Resolving]
  - Catheter site erythema [Recovered/Resolved]
  - Cough [Unknown]
  - Pyrexia [Unknown]
  - Catheter site scab [Recovered/Resolved]
  - Mass [Recovered/Resolved]
  - Pruritus [Unknown]
  - Asthenia [Recovering/Resolving]
  - Nasal discharge discolouration [Unknown]
  - Epistaxis [Unknown]
  - Dysarthria [Recovering/Resolving]
  - Lower respiratory tract infection [Unknown]

NARRATIVE: CASE EVENT DATE: 20181105
